FAERS Safety Report 9759742 (Version 1)
Quarter: 2013Q4

REPORT INFORMATION
  Report Type: Spontaneous
  Country: US (occurrence: US)
  Receive Date: 20131216
  Receipt Date: 20131216
  Transmission Date: 20140711
  Serious: No
  Sender: FDA-Public Use
  Company Number: US-GILEAD-2010-0029098

PATIENT
  Age: 61 Year
  Sex: Female
  Weight: 71.67 kg

DRUGS (18)
  1. LETAIRIS [Suspect]
     Indication: PULMONARY ARTERIAL HYPERTENSION
     Route: 048
     Dates: start: 20071130
  2. LOPRESSOR [Concomitant]
  3. MULTIVITAMIN [Concomitant]
  4. VENTAVIS [Concomitant]
  5. AMOXICILLIN [Concomitant]
  6. BIAXIN [Concomitant]
  7. METHYLDOPA [Concomitant]
  8. FLONASE [Concomitant]
  9. LASIX [Concomitant]
  10. FOLIC ACID [Concomitant]
  11. PREDNISONE [Concomitant]
  12. METHOTREXATE [Concomitant]
  13. VIAGRA [Concomitant]
  14. GLIPIZIDE [Concomitant]
  15. PRILOSEC [Concomitant]
  16. CLINDAMYCIN HCL [Concomitant]
  17. HYDROCODONE W/APAP [Concomitant]
  18. AMBIEN [Concomitant]

REACTIONS (1)
  - Dizziness [Unknown]
